FAERS Safety Report 23433127 (Version 1)
Quarter: 2024Q1

REPORT INFORMATION
  Report Type: Spontaneous
  Country: US (occurrence: None)
  Receive Date: 20240123
  Receipt Date: 20240123
  Transmission Date: 20240409
  Serious: Yes (Hospitalization)
  Sender: FDA-Public Use
  Company Number: None

PATIENT
  Sex: Female

DRUGS (4)
  1. VERZENIO [Suspect]
     Active Substance: ABEMACICLIB
     Indication: Breast cancer female
     Dosage: FREQUENCY : TWICE A DAY;?
     Route: 048
     Dates: start: 202209
  2. VERZENIO [Suspect]
     Active Substance: ABEMACICLIB
     Indication: Thyroid cancer
  3. VERZENIO [Suspect]
     Active Substance: ABEMACICLIB
     Indication: Thyroid cancer
  4. VERZENIO [Suspect]
     Active Substance: ABEMACICLIB
     Indication: Thyroid cancer

REACTIONS (1)
  - Hospitalisation [None]
